FAERS Safety Report 6401692-8 (Version None)
Quarter: 2009Q4

REPORT INFORMATION
  Report Type: 
  Country: None (occurrence: None)
  Receive Date: 20091015
  Receipt Date: 20091008
  Transmission Date: 20100525
  Serious: Yes (Other)
  Sender: FDA-Public Use
  Company Number: IE-PFIZER INC-2009280156

PATIENT
  Age: 75 Year

DRUGS (3)
  1. ZYVOX [Suspect]
     Dosage: UNK
  2. FLAGYL [Suspect]
     Route: 048
  3. CIPROFLOXACIN HCL [Suspect]

REACTIONS (2)
  - BLINDNESS [None]
  - OPTIC ATROPHY [None]
